FAERS Safety Report 8380193-4 (Version None)
Quarter: 2012Q2

REPORT INFORMATION
  Report Type: 
  Country: None (occurrence: None)
  Receive Date: 20120523
  Receipt Date: 20120515
  Transmission Date: 20120825
  Serious: Yes (Hospitalization)
  Sender: FDA-Public Use
  Company Number: US-ASTRAZENECA-2012SE31060

PATIENT
  Age: 56 Year
  Sex: Male
  Weight: 95.3 kg

DRUGS (7)
  1. COREG [Concomitant]
  2. LISINOPRIL [Concomitant]
  3. ASPIRIN [Concomitant]
  4. PRILOSEC OTC [Concomitant]
  5. BRILINTA [Suspect]
     Route: 048
     Dates: start: 20120210
  6. GENERIC STATIN [Concomitant]
  7. OTC ALLERGY MED [Concomitant]

REACTIONS (5)
  - NAUSEA [None]
  - VOMITING [None]
  - RASH [None]
  - DIZZINESS [None]
  - FALL [None]
